FAERS Safety Report 15567659 (Version 1)
Quarter: 2018Q4

REPORT INFORMATION
  Report Type: Spontaneous
  Country: ZA (occurrence: ZA)
  Receive Date: 20181030
  Receipt Date: 20181030
  Transmission Date: 20190205
  Serious: Yes (Hospitalization)
  Sender: FDA-Public Use
  Company Number: ZA-SA-2018SA298404

PATIENT
  Age: 61 Year
  Sex: Female

DRUGS (9)
  1. BISOPROLOL [Concomitant]
     Active Substance: BISOPROLOL
     Dosage: UNK MG
  2. ATORVASTATIN [Concomitant]
     Active Substance: ATORVASTATIN
     Dosage: UNK MG
     Dates: start: 20180918
  3. ZOMEVEK [Concomitant]
     Active Substance: VALSARTAN
     Dosage: UNK MG
  4. ECOTRIN [Concomitant]
     Active Substance: ASPIRIN
     Dosage: UNK MG
  5. HEXARONE [Concomitant]
     Active Substance: AMIODARONE
     Dosage: UNK MG
  6. CARDICOR [Concomitant]
     Active Substance: BISOPROLOL
     Dosage: UNK MG
  7. CLOPIDOGREL BISULFATE. [Suspect]
     Active Substance: CLOPIDOGREL BISULFATE
  8. XARELTO [Concomitant]
     Active Substance: RIVAROXABAN
     Dosage: UNK MG
  9. LANSOLOC [Concomitant]
     Dosage: UNK MG

REACTIONS (3)
  - Atrioventricular block [Recovering/Resolving]
  - Heart rate abnormal [Recovering/Resolving]
  - Cardiac disorder [Recovering/Resolving]

NARRATIVE: CASE EVENT DATE: 20180923
